FAERS Safety Report 5136695-7 (Version None)
Quarter: 2006Q4

REPORT INFORMATION
  Report Type: 
  Country: None (occurrence: None)
  Receive Date: 20061023
  Receipt Date: 20061013
  Transmission Date: 20070319
  Serious: Yes (Death)
  Sender: FDA-Public Use
  Company Number: 2006S1000224

PATIENT
  Age: 4 Month
  Sex: Female

DRUGS (2)
  1. CUBICIN [Suspect]
     Indication: STAPHYLOCOCCAL SEPSIS
     Dosage: 6 MG/KG;Q24H;UNKNOWN
  2. VANCOMYCIN [Concomitant]

REACTIONS (2)
  - COAGULOPATHY [None]
  - LIVER DISORDER [None]
